FAERS Safety Report 9397777 (Version 1)
Quarter: 2013Q3

REPORT INFORMATION
  Report Type: Spontaneous
  Country: US (occurrence: US)
  Receive Date: 20130712
  Receipt Date: 20130712
  Transmission Date: 20140515
  Serious: Yes (Hospitalization)
  Sender: FDA-Public Use
  Company Number: US-B.I. PHARMACEUTICALS,INC./RIDGEFIELD-2013-BI-19821BP

PATIENT
  Age: 68 Year
  Sex: Male

DRUGS (15)
  1. COMBIVENT [Suspect]
     Indication: CHRONIC OBSTRUCTIVE PULMONARY DISEASE
     Dosage: STRENGTH: 20 MCG / 100 MCG; DAILY DOSE: 160 MCG/800 MCG
     Route: 055
     Dates: start: 2012
  2. SYMBICORT [Concomitant]
     Route: 055
  3. VENTOLIN [Concomitant]
     Route: 055
  4. PULMICORT [Concomitant]
     Route: 055
  5. OSTEOBIFLEX [Concomitant]
     Route: 048
  6. CELEBREX [Concomitant]
     Route: 048
  7. SYNTHROID [Concomitant]
     Route: 048
  8. FOLIC ACID [Concomitant]
     Route: 048
  9. ASPIRIN [Concomitant]
     Route: 048
  10. ATORVASTATIN [Concomitant]
     Route: 048
  11. ISOSORB MONO [Concomitant]
     Route: 048
  12. VITAMIN D [Concomitant]
     Route: 048
  13. VITAMIN E [Concomitant]
     Route: 048
  14. ZYRTEC [Concomitant]
     Route: 048
  15. FLUTICASONE NASAL [Concomitant]
     Route: 045

REACTIONS (5)
  - Cystitis [Recovered/Resolved]
  - Diverticulitis [Recovered/Resolved]
  - Vesical fistula [Recovered/Resolved]
  - Renal failure [Recovered/Resolved]
  - Drug prescribing error [Not Recovered/Not Resolved]
